FAERS Safety Report 24898729 (Version 2)
Quarter: 2025Q1

REPORT INFORMATION
  Report Type: Report from Study
  Country: CA (occurrence: CA)
  Receive Date: 20250129
  Receipt Date: 20250205
  Transmission Date: 20250409
  Serious: Yes (Other)
  Sender: TAKEDA
  Company Number: CA-TAKEDA-2025TUS009182

PATIENT
  Sex: Male

DRUGS (3)
  1. VEDOLIZUMAB [Suspect]
     Active Substance: VEDOLIZUMAB
     Indication: Colitis ulcerative
     Dates: start: 20240629, end: 20250125
  2. PREDNISONE [Concomitant]
     Active Substance: PREDNISONE
  3. MESALAMINE [Concomitant]
     Active Substance: MESALAMINE
     Dosage: 3.6 GRAM, QD
     Dates: start: 20240307

REACTIONS (2)
  - Colitis ulcerative [Recovering/Resolving]
  - Treatment failure [Unknown]
